FAERS Safety Report 24013392 (Version 1)
Quarter: 2024Q2

REPORT INFORMATION
  Report Type: Spontaneous
  Country: US (occurrence: US)
  Receive Date: 20240626
  Receipt Date: 20240626
  Transmission Date: 20240716
  Serious: No
  Sender: FDA-Public Use
  Company Number: US-ROCHE-10000002320

PATIENT
  Age: 75 Year
  Sex: Male
  Weight: 96.16 kg

DRUGS (2)
  1. GAZYVA [Suspect]
     Active Substance: OBINUTUZUMAB
     Indication: Product used for unknown indication
     Route: 042
     Dates: start: 20240610, end: 20240610
  2. GAZYVA [Suspect]
     Active Substance: OBINUTUZUMAB
     Dosage: DAY 2 DOSE
     Route: 042
     Dates: start: 20240611

REACTIONS (1)
  - Product preparation error [Unknown]

NARRATIVE: CASE EVENT DATE: 20240610
